FAERS Safety Report 8295824-7 (Version None)
Quarter: 2012Q2

REPORT INFORMATION
  Report Type: 
  Country: None (occurrence: None)
  Receive Date: 20120418
  Receipt Date: 20120411
  Transmission Date: 20120825
  Serious: Yes (Other)
  Sender: FDA-Public Use
  Company Number: JP-VERTEX PHARMACEUTICALS INC.-AE-2012-003019

PATIENT
  Age: 66 Year
  Sex: Female

DRUGS (9)
  1. TELAVIC (TELAPREVIR) [Suspect]
     Route: 048
     Dates: start: 20120312
  2. TELAVIC (TELAPREVIR) [Suspect]
     Indication: HEPATITIS C
     Route: 048
     Dates: start: 20120216, end: 20120226
  3. PEGINTERFERON [Concomitant]
     Indication: HEPATITIS C
     Route: 051
     Dates: start: 20120216
  4. GLAKAY [Concomitant]
     Route: 048
     Dates: end: 20120227
  5. RIBAVIRIN [Concomitant]
     Indication: HEPATITIS C
     Route: 048
     Dates: start: 20120216
  6. TELAVIC (TELAPREVIR) [Suspect]
     Route: 048
     Dates: start: 20120301
  7. URSODIOL [Concomitant]
     Route: 048
  8. YODEL-S [Concomitant]
     Route: 048
  9. MAGMITT [Concomitant]
     Route: 048

REACTIONS (1)
  - URTICARIA [None]
